FAERS Safety Report 10013954 (Version 2)
Quarter: 2014Q3

REPORT INFORMATION
  Report Type: Spontaneous
  Country: US (occurrence: US)
  Receive Date: 20140316
  Receipt Date: 20140807
  Transmission Date: 20150326
  Serious: No
  Sender: FDA-Public Use
  Company Number: US-LUNDBECK-DKLU1097313

PATIENT
  Age: 46 Year
  Sex: Male
  Weight: 99 kg

DRUGS (24)
  1. ONFI [Suspect]
     Active Substance: CLOBAZAM
     Route: 048
     Dates: start: 20130829, end: 20130904
  2. SABRIL [Concomitant]
     Active Substance: VIGABATRIN
     Indication: CONVULSION
     Dates: start: 20130204, end: 20130214
  3. TYLENOL [Concomitant]
     Active Substance: ACETAMINOPHEN
     Indication: HEADACHE
     Route: 048
     Dates: start: 2007
  4. VIMPAT [Concomitant]
     Active Substance: LACOSAMIDE
     Indication: CONVULSION
     Route: 048
     Dates: start: 20130425
  5. SABRIL [Concomitant]
     Active Substance: VIGABATRIN
     Dates: start: 20130302, end: 20130309
  6. ONFI [Suspect]
     Active Substance: CLOBAZAM
     Route: 048
     Dates: start: 20130905, end: 20130911
  7. ONFI [Suspect]
     Active Substance: CLOBAZAM
     Route: 048
     Dates: start: 20130912, end: 20131207
  8. SABRIL [Concomitant]
     Active Substance: VIGABATRIN
     Dates: start: 20130215, end: 20130221
  9. SABRIL [Concomitant]
     Active Substance: VIGABATRIN
     Dates: start: 20130822, end: 20130828
  10. SABRIL [Concomitant]
     Active Substance: VIGABATRIN
     Dates: start: 20130919, end: 20130929
  11. CARBAMAZEPINE. [Concomitant]
     Active Substance: CARBAMAZEPINE
     Indication: CONVULSION
  12. MOTRIN [Concomitant]
     Active Substance: IBUPROFEN
     Indication: HEADACHE
     Route: 048
     Dates: start: 2007
  13. SABRIL [Concomitant]
     Active Substance: VIGABATRIN
     Dates: start: 20130829, end: 20130904
  14. SABRIL [Concomitant]
     Active Substance: VIGABATRIN
     Dates: start: 20130905, end: 20130911
  15. ONFI [Suspect]
     Active Substance: CLOBAZAM
     Indication: CONVULSION
     Route: 048
     Dates: start: 20130821, end: 20130828
  16. ONFI [Suspect]
     Active Substance: CLOBAZAM
     Route: 048
     Dates: start: 20130905, end: 20130911
  17. SABRIL [Concomitant]
     Active Substance: VIGABATRIN
     Dates: start: 20130422, end: 20130821
  18. PAXIL [Concomitant]
     Active Substance: PAROXETINE HYDROCHLORIDE
     Indication: DEPRESSION
     Route: 048
     Dates: start: 1998
  19. LOTREL [Concomitant]
     Active Substance: AMLODIPINE BESYLATE\BENAZEPRIL HYDROCHLORIDE
     Indication: HYPERTENSION
     Route: 048
     Dates: start: 200006
  20. ONFI [Suspect]
     Active Substance: CLOBAZAM
     Route: 048
     Dates: start: 20131207
  21. SABRIL [Concomitant]
     Active Substance: VIGABATRIN
     Dates: start: 20130222, end: 20130228
  22. SABRIL [Concomitant]
     Active Substance: VIGABATRIN
     Dates: start: 20130310, end: 20130422
  23. SABRIL [Concomitant]
     Active Substance: VIGABATRIN
     Dates: start: 20130422, end: 20130821
  24. SABRIL [Concomitant]
     Active Substance: VIGABATRIN
     Dates: start: 20130912, end: 20130918

REACTIONS (1)
  - Vision blurred [Not Recovered/Not Resolved]

NARRATIVE: CASE EVENT DATE: 201308
